FAERS Safety Report 4822905-X (Version None)
Quarter: 2005Q4

REPORT INFORMATION
  Report Type: 
  Country: None (occurrence: None)
  Receive Date: 20051104
  Receipt Date: 20051020
  Transmission Date: 20060501
  Serious: Yes (Other)
  Sender: FDA-Public Use
  Company Number: 2005-0008835

PATIENT
  Age: 52 Year
  Sex: Male
  Weight: 55.3388 kg

DRUGS (7)
  1. VIREAD [Suspect]
     Indication: HIV INFECTION
     Dosage: 300 MG, 1 IN 1 D, ORAL
     Route: 048
     Dates: start: 20020401, end: 20040920
  2. KALETRA [Concomitant]
  3. VIDEX EC [Concomitant]
  4. TOPROL-XL [Concomitant]
  5. ACETYLSALICYLIC ACID SRT [Concomitant]
  6. TRAZODONE HCL [Concomitant]
  7. NEURONTIN [Concomitant]

REACTIONS (6)
  - BLOOD CREATININE INCREASED [None]
  - CALCULUS URETERIC [None]
  - CORONARY ARTERY DISEASE [None]
  - FANCONI SYNDROME [None]
  - NEPHROLITHIASIS [None]
  - URETERIC OBSTRUCTION [None]
